FAERS Safety Report 6142140-5 (Version None)
Quarter: 2009Q2

REPORT INFORMATION
  Report Type: 
  Country: None (occurrence: None)
  Receive Date: 20090402
  Receipt Date: 20090325
  Transmission Date: 20091009
  Serious: Yes (Hospitalization)
  Sender: FDA-Public Use
  Company Number: TR-MERCK-0903USA05390

PATIENT
  Age: 55 Year
  Sex: Female

DRUGS (2)
  1. DECADRON [Suspect]
     Indication: BRAIN OEDEMA
     Route: 048
  2. TEMOZOLOMIDE [Suspect]
     Indication: GLIOMA
     Route: 065

REACTIONS (3)
  - INFECTION SUSCEPTIBILITY INCREASED [None]
  - LYMPHOCYTE COUNT DECREASED [None]
  - PNEUMOCYSTIS JIROVECI INFECTION [None]
